FAERS Safety Report 9844774 (Version 1)
Quarter: 2014Q1

REPORT INFORMATION
  Report Type: Spontaneous
  Country: GB (occurrence: None)
  Receive Date: 20140122
  Receipt Date: 20140122
  Transmission Date: 20141002
  Serious: Yes (Hospitalization, Disabling)
  Sender: FDA-Public Use
  Company Number: ACET20140001

PATIENT
  Age: 58 Year
  Sex: Female

DRUGS (3)
  1. Q-PAP [Suspect]
     Indication: INTENTIONAL OVERDOSE
     Dosage: 16 IN 1 D
     Route: 048
  2. PERSANTIN [Suspect]
     Indication: INTENTIONAL OVERDOSE
     Route: 048
  3. FLUOXETINE (FLUOXETINE) (UNKNOWN) (FLUOXETINE) [Concomitant]

REACTIONS (15)
  - Intestinal ischaemia [None]
  - Multi-organ failure [None]
  - Overdose [None]
  - Sinus tachycardia [None]
  - Hypotension [None]
  - Aspartate aminotransferase increased [None]
  - Alanine aminotransferase increased [None]
  - Gamma-glutamyltransferase increased [None]
  - Blood alkaline phosphatase increased [None]
  - Renal failure acute [None]
  - Metabolic acidosis [None]
  - Hypokalaemia [None]
  - Delirium [None]
  - Cardiac arrest [None]
  - Dysphonia [None]
